FAERS Safety Report 10789712 (Version 3)
Quarter: 2015Q1

REPORT INFORMATION
  Report Type: Spontaneous
  Country: JP (occurrence: JP)
  Receive Date: 20150212
  Receipt Date: 20150304
  Transmission Date: 20150721
  Serious: Yes (Death, Other)
  Sender: FDA-Public Use
  Company Number: JP-PFIZER INC-2015057622

PATIENT
  Age: 94 Year
  Sex: Female

DRUGS (7)
  1. FLUITRAN [Concomitant]
     Active Substance: TRICHLORMETHIAZIDE
     Dosage: UNK
     Route: 048
  2. GASCON [Concomitant]
     Active Substance: DIMETHICONE
     Dosage: UNK
     Route: 048
  3. MAALOX ANTACID [Concomitant]
     Active Substance: ALUMINUM HYDROXIDE\DIMETHICONE\MAGNESIUM HYDROXIDE
     Dosage: UNK
     Route: 048
  4. DOMPERIDONE [Concomitant]
     Active Substance: DOMPERIDONE
     Dosage: UNK
     Route: 048
  5. CELECOX [Suspect]
     Active Substance: CELECOXIB
     Indication: BACK PAIN
     Dosage: 200 MG, 1X/DAY
     Route: 048
     Dates: start: 20150205
  6. OVULANZE [Concomitant]
     Active Substance: OMEPRAZOLE
     Dosage: UNK
     Route: 048
  7. OLMETEC [Concomitant]
     Active Substance: OLMESARTAN MEDOXOMIL
     Dosage: UNK
     Route: 048

REACTIONS (1)
  - Death [Fatal]

NARRATIVE: CASE EVENT DATE: 20150208
